FAERS Safety Report 5113579-1 (Version None)
Quarter: 2006Q3

REPORT INFORMATION
  Report Type: 
  Country: None (occurrence: None)
  Receive Date: 20060921
  Receipt Date: 20060908
  Transmission Date: 20061208
  Serious: Yes (Hospitalization, Disabling, Other)
  Sender: FDA-Public Use
  Company Number: 2006104138

PATIENT
  Age: 13 Month
  Sex: Male
  Weight: 6.804 kg

DRUGS (7)
  1. DILANTIN [Suspect]
     Indication: CONVULSION
     Dosage: SEE IMAGE
     Route: 042
     Dates: start: 19921013, end: 19921103
  2. DILANTIN [Suspect]
     Indication: CONVULSION
     Dosage: SEE IMAGE
     Route: 042
     Dates: start: 19921019
  3. PHENOBARBITAL TAB [Suspect]
     Indication: CONVULSION
     Dosage: 75 MG (2 IN 1 D), ORAL
     Route: 048
     Dates: start: 19921013, end: 19921103
  4. PYRIDOXINE HCL [Concomitant]
  5. AMOXICILLIN [Concomitant]
  6. ATIVAN [Concomitant]
  7. DEPAKOTE [Concomitant]

REACTIONS (9)
  - ANTICONVULSANT DRUG LEVEL DECREASED [None]
  - ASPARTATE AMINOTRANSFERASE INCREASED [None]
  - FALL [None]
  - HYPERSENSITIVITY [None]
  - OTITIS MEDIA [None]
  - PNEUMONIA [None]
  - STATUS EPILEPTICUS [None]
  - STEVENS-JOHNSON SYNDROME [None]
  - VENTRICULAR HYPERTROPHY [None]
